FAERS Safety Report 6901975-9 (Version None)
Quarter: 2010Q3

REPORT INFORMATION
  Report Type: 
  Country: None (occurrence: None)
  Receive Date: 20100802
  Receipt Date: 20100802
  Transmission Date: 20110219
  Serious: No
  Sender: FDA-Public Use
  Company Number: None

PATIENT
  Age: 23 Year
  Sex: Female
  Weight: 75.7507 kg

DRUGS (1)
  1. OCELLA DRAP 3MG, EE . 03MG BAYER HEALTHCARE PHARMACETUICALS [Suspect]
     Indication: CONTRACEPTION
     Dosage: 1 TAB DAILY PO
     Route: 048
     Dates: start: 20090730, end: 20100312

REACTIONS (1)
  - CHOLELITHIASIS [None]
